FAERS Safety Report 7533090-8 (Version None)
Quarter: 2011Q2

REPORT INFORMATION
  Report Type: 
  Country: None (occurrence: None)
  Receive Date: 20110608
  Receipt Date: 20110602
  Transmission Date: 20111010
  Serious: Yes (Hospitalization)
  Sender: FDA-Public Use
  Company Number: BR-MEDIMMUNE-MEDI-0013209

PATIENT
  Sex: Male
  Weight: 4.8 kg

DRUGS (1)
  1. SYNAGIS [Suspect]
     Route: 030
     Dates: start: 20110413

REACTIONS (11)
  - PNEUMONIA [None]
  - COUGH [None]
  - PNEUMOTHORAX [None]
  - COLLAPSE OF LUNG [None]
  - INFLUENZA [None]
  - WEIGHT DECREASED [None]
  - DYSPNOEA [None]
  - BRONCHIOLITIS [None]
  - BRONCHOSPASM [None]
  - APNOEA [None]
  - RHINITIS [None]
